FAERS Safety Report 20884754 (Version 2)
Quarter: 2022Q2

REPORT INFORMATION
  Report Type: Spontaneous
  Country: US (occurrence: US)
  Receive Date: 20220527
  Receipt Date: 20220616
  Transmission Date: 20220720
  Serious: Yes (Hospitalization)
  Sender: FDA-Public Use
  Company Number: US-PFIZER INC-202200757603

PATIENT
  Age: 78 Year
  Sex: Female
  Weight: 65.77 kg

DRUGS (3)
  1. TOVIAZ [Suspect]
     Active Substance: FESOTERODINE FUMARATE
     Indication: Incontinence
     Dosage: 8 MG, 1X/DAY (ONCE A DAY BEFORE GOING TO BED )
     Dates: start: 20220325, end: 20220330
  2. CARVEDILOL [Concomitant]
     Active Substance: CARVEDILOL
     Indication: Blood pressure measurement
     Dosage: 25 MG
  3. METHENAMINE HIPPURATE [Concomitant]
     Active Substance: METHENAMINE HIPPURATE
     Indication: Bladder disorder
     Dosage: 1 MG

REACTIONS (3)
  - Dysuria [Recovered/Resolved]
  - Feeling abnormal [Recovered/Resolved]
  - Urinary tract infection [Unknown]

NARRATIVE: CASE EVENT DATE: 20220325
